FAERS Safety Report 11184501 (Version 2)
Quarter: 2016Q3

REPORT INFORMATION
  Report Type: Spontaneous
  Country: US (occurrence: US)
  Receive Date: 20150612
  Receipt Date: 20160811
  Transmission Date: 20161109
  Serious: Yes (Other)
  Sender: FDA-Public Use
  Company Number: US-TEVA-569970ACC

PATIENT
  Age: 39 Year
  Sex: Female
  Weight: 56.3 kg

DRUGS (1)
  1. PARAGARD T 380A [Suspect]
     Active Substance: COPPER
     Indication: CONTRACEPTION
     Route: 015
     Dates: start: 20140624

REACTIONS (5)
  - Device dislocation [Recovered/Resolved]
  - Menstruation delayed [Recovered/Resolved]
  - Pregnancy on contraceptive [Unknown]
  - Exposure during pregnancy [Unknown]
  - Abortion induced [Unknown]

NARRATIVE: CASE EVENT DATE: 20150602
